FAERS Safety Report 5751334-X (Version None)
Quarter: 2008Q2

REPORT INFORMATION
  Report Type: 
  Country: None (occurrence: None)
  Receive Date: 20080519
  Receipt Date: 20071207
  Transmission Date: 20081010
  Serious: Yes (Hospitalization)
  Sender: FDA-Public Use
  Company Number: US-WYE-H01605207

PATIENT
  Age: 13 Month
  Sex: Female

DRUGS (3)
  1. SUPRAX [Suspect]
     Indication: OTITIS MEDIA
     Dosage: 6 ML (240 MG) PER DAY, ORAL
     Route: 048
     Dates: start: 20071109, end: 20071111
  2. AMOXICILLIN [Suspect]
     Indication: OTITIS MEDIA
     Dates: start: 20071011, end: 20071021
  3. ROCEPHIN [Concomitant]

REACTIONS (1)
  - CONVULSION [None]
